FAERS Safety Report 8161660-5 (Version None)
Quarter: 2012Q1

REPORT INFORMATION
  Report Type: 
  Country: None (occurrence: None)
  Receive Date: 20120224
  Receipt Date: 20120222
  Transmission Date: 20120608
  Serious: Yes (Other)
  Sender: FDA-Public Use
  Company Number: US-PFIZER INC-2012047401

PATIENT
  Sex: Male
  Weight: 88.9 kg

DRUGS (5)
  1. OXYCODONE [Concomitant]
     Indication: PAIN
     Dosage: UNK
  2. LYRICA [Suspect]
     Indication: FIBROMYALGIA
  3. ALPRAZOLAM [Concomitant]
     Indication: BIPOLAR DISORDER
     Dosage: UNK
  4. LYRICA [Suspect]
     Indication: PAIN
     Dosage: 75 MG, 2X/DAY
     Route: 048
     Dates: end: 20110101
  5. TIZANIDINE [Concomitant]
     Indication: MUSCLE SPASMS
     Dosage: 4MG

REACTIONS (3)
  - RIB FRACTURE [None]
  - UPPER LIMB FRACTURE [None]
  - FALL [None]
